FAERS Safety Report 7397040-X (Version None)
Quarter: 2011Q2

REPORT INFORMATION
  Report Type: 
  Country: None (occurrence: None)
  Receive Date: 20110406
  Receipt Date: 20110330
  Transmission Date: 20111010
  Serious: Yes (Hospitalization, Other)
  Sender: FDA-Public Use
  Company Number: US-ABBOTT-11P-163-0715783-00

PATIENT
  Sex: Male
  Weight: 77.18 kg

DRUGS (1)
  1. HUMIRA [Suspect]
     Indication: PSORIASIS
     Dosage: 1 IN 2 WKS, BUT NOT TAKING AS PRESCIBED
     Route: 058
     Dates: end: 20101201

REACTIONS (8)
  - PAIN [None]
  - STAPHYLOCOCCAL INFECTION [None]
  - AMNESIA [None]
  - ARTHRALGIA [None]
  - LOSS OF CONSCIOUSNESS [None]
  - DRUG DOSE OMISSION [None]
  - SEPSIS [None]
  - PSORIASIS [None]
